FAERS Safety Report 5741298 (Version 1)
Quarter: 2020Q3

REPORT INFORMATION
  Report Type: Report from Study
  Country: PL (occurrence: PL)
  Receive Date: 20050217
  Receipt Date: 20050217
  Transmission Date: 20201104
  Serious: Yes (Life-Threatening)
  Sender: FDA-Public Use
  Company Number: PL-JNJFOC-20040301659

PATIENT
  Age: 73 Year
  Sex: Female
  Weight: 86 kg

DRUGS (11)
  1. INSULIN NOS [Concomitant]
     Active Substance: INSULIN NOS
  2. ABCIXIMAB [Suspect]
     Active Substance: ABCIXIMAB
     Indication: ACUTE MYOCARDIAL INFARCTION
     Route: 042
  3. RETEPLASE [Suspect]
     Active Substance: RETEPLASE
     Indication: ACUTE MYOCARDIAL INFARCTION
     Route: 042
  4. PLACEBO [Suspect]
     Active Substance: UNSPECIFIED INGREDIENT
     Indication: ACUTE MYOCARDIAL INFARCTION
     Route: 042
  5. RANITIDINE. [Concomitant]
     Active Substance: RANITIDINE
     Route: 042
  6. TICLOPIDINE [Concomitant]
     Active Substance: TICLOPIDINE
     Route: 049
  7. BISOPROLOL [Concomitant]
     Active Substance: BISOPROLOL
     Route: 049
  8. ASPIRIN. [Concomitant]
     Active Substance: ASPIRIN
  9. CEFUROXIME. [Concomitant]
     Active Substance: CEFUROXIME
  10. RETEPLASE [Suspect]
     Active Substance: RETEPLASE
     Indication: ACUTE MYOCARDIAL INFARCTION
     Route: 042
  11. SIMVASTATIN. [Concomitant]
     Active Substance: SIMVASTATIN
     Route: 049

REACTIONS (9)
  - Post procedural haematoma [None]
  - Chest pain [None]
  - Drug interaction [None]
  - Complication associated with device [None]
  - Thrombosis [None]
  - Electrocardiogram ST segment elevation [None]
  - Catheter site haemorrhage [Not Recovered/Not Resolved]
  - Pneumonia [Unknown]
  - Blood pressure decreased [None]

NARRATIVE: CASE EVENT DATE: 20040303
